FAERS Safety Report 25477282 (Version 1)
Quarter: 2025Q2

REPORT INFORMATION
  Report Type: Spontaneous
  Country: IR (occurrence: IR)
  Receive Date: 20250625
  Receipt Date: 20250625
  Transmission Date: 20250716
  Serious: Yes (Other)
  Sender: RANBAXY
  Company Number: IR-SUN PHARMACEUTICAL INDUSTRIES LTD-2025RR-513218

PATIENT
  Age: 16 Year
  Sex: Female

DRUGS (1)
  1. BACLOFEN [Suspect]
     Active Substance: BACLOFEN
     Indication: Product used for unknown indication
     Route: 065

REACTIONS (5)
  - Suicide attempt [Unknown]
  - Respiratory failure [Recovered/Resolved]
  - Pneumothorax [Recovered/Resolved]
  - Dyspnoea [Recovered/Resolved]
  - Pneumomediastinum [Unknown]
